FAERS Safety Report 10920993 (Version 5)
Quarter: 2015Q4

REPORT INFORMATION
  Report Type: Report from Study
  Country: ES (occurrence: ES)
  Receive Date: 20150317
  Receipt Date: 20151229
  Transmission Date: 20160304
  Serious: Yes (Other)
  Sender: FDA-Public Use
  Company Number: ES-ROCHE-1551501

PATIENT
  Age: 64 Year
  Sex: Male
  Weight: 88.5 kg

DRUGS (13)
  1. ATORVASTATINA [Concomitant]
     Active Substance: ATORVASTATIN
     Route: 065
     Dates: start: 2008
  2. METILPREDNISOLONE [Concomitant]
     Active Substance: METHYLPREDNISOLONE
     Route: 065
     Dates: start: 20141112
  3. EZETIMIBA [Concomitant]
     Route: 065
     Dates: start: 2010
  4. CARVEDILOL. [Concomitant]
     Active Substance: CARVEDILOL
     Route: 065
     Dates: start: 20141212
  5. FOLIC ACID. [Concomitant]
     Active Substance: FOLIC ACID
     Route: 065
     Dates: start: 20140917
  6. ACETYLSALICYLIC ACID [Concomitant]
     Active Substance: ASPIRIN
     Route: 065
     Dates: start: 2008
  7. TOCILIZUMAB [Suspect]
     Active Substance: TOCILIZUMAB
     Indication: RHEUMATOID ARTHRITIS
     Dosage: DATE OF LAST DOSE PRIRO TO SAE: 12/FEB/2015
     Route: 058
     Dates: start: 20150115, end: 20150305
  8. METHOTREXATE [Suspect]
     Active Substance: METHOTREXATE
     Indication: RHEUMATOID ARTHRITIS
     Route: 065
     Dates: start: 20141112, end: 20150305
  9. MELOXICAM. [Concomitant]
     Active Substance: MELOXICAM
     Route: 065
     Dates: start: 20140917
  10. OMEPRAZOL [Concomitant]
     Active Substance: OMEPRAZOLE
     Route: 065
     Dates: start: 20121031
  11. SULFATO FERROSO [Concomitant]
     Route: 065
     Dates: start: 20141112, end: 20150128
  12. CANDESARTAN [Concomitant]
     Active Substance: CANDESARTAN
     Route: 065
     Dates: start: 2008
  13. BETAMETASONA [Concomitant]
     Route: 065
     Dates: start: 20150120, end: 20150127

REACTIONS (1)
  - Interstitial lung disease [Unknown]

NARRATIVE: CASE EVENT DATE: 20150216
